FAERS Safety Report 9173386 (Version 1)
Quarter: 2013Q1

REPORT INFORMATION
  Report Type: Spontaneous
  Country: TR (occurrence: None)
  Receive Date: 20130314
  Receipt Date: 20130314
  Transmission Date: 20140127
  Serious: Yes (Other)
  Sender: FDA-Public Use
  Company Number: 1625831

PATIENT
  Age: 57 Year
  Sex: Female

DRUGS (2)
  1. IRINOTECAN HYDROCHLORIDE [Suspect]
     Indication: BREAST CANCER METASTATIC
  2. (TASTUZUMAB) [Concomitant]

REACTIONS (7)
  - Hypocalcaemia [None]
  - Blood magnesium decreased [None]
  - Hypokalaemia [None]
  - Diarrhoea [None]
  - Febrile neutropenia [None]
  - Acute prerenal failure [None]
  - Blood creatinine increased [None]
